FAERS Safety Report 24665440 (Version 2)
Quarter: 2024Q4

REPORT INFORMATION
  Report Type: Spontaneous
  Country: DE (occurrence: DE)
  Receive Date: 20241126
  Receipt Date: 20241202
  Transmission Date: 20250115
  Serious: Yes (Life-Threatening, Hospitalization, Other)
  Sender: TORRENT PHARMA INC.
  Company Number: DE-TORRENT-00027641

PATIENT
  Age: 45 Year
  Sex: Female

DRUGS (1)
  1. CLOPIDOGREL [Suspect]
     Active Substance: CLOPIDOGREL BISULFATE
     Indication: Antiplatelet therapy
     Dosage: UNKNOWN
     Route: 065

REACTIONS (3)
  - Evans syndrome [Recovered/Resolved]
  - Headache [Unknown]
  - Epilepsy [Unknown]
